FAERS Safety Report 4835542-8 (Version None)
Quarter: 2005Q4

REPORT INFORMATION
  Report Type: 
  Country: None (occurrence: None)
  Receive Date: 20051121
  Receipt Date: 20051110
  Transmission Date: 20060501
  Serious: Yes (Hospitalization)
  Sender: FDA-Public Use
  Company Number: GXKR2005US01958

PATIENT
  Age: 74 Year
  Sex: Male

DRUGS (18)
  1. AMIODARONE (NGX)(AMIODARONE) UNKNOWN [Suspect]
     Indication: ATRIAL FIBRILLATION
     Dosage: SEE IMAGE
     Route: 042
  2. DILTIAZEM [Suspect]
     Indication: ATRIAL FIBRILLATION
     Dosage: SEE IMAGE
     Route: 048
  3. CHLOROTHIAZIDE [Concomitant]
  4. SPIRONOLACTONE [Concomitant]
  5. ALLOPURINOL [Concomitant]
  6. ATORVASTATIN CALCIUM [Concomitant]
  7. FLUTICASONE W/SALMETEROL (FLUTICASONE, SALMETEROL) [Concomitant]
  8. MOXIFLOXACIN HCL [Concomitant]
  9. FLUCONAZOLE [Concomitant]
  10. VANCOMYCIN [Concomitant]
  11. CEFEPIME (CEFEPIME) [Concomitant]
  12. TOBRAMYCIN [Concomitant]
  13. MEROPENEM (MEROPENEM) [Concomitant]
  14. VORICONAZOLE (VORICONAZOLE) [Concomitant]
  15. SULFAMETHOXAZOLE + TRIMETHOPRIM [Concomitant]
  16. LOPERAMIDE HCL [Concomitant]
  17. CYTARABINE [Concomitant]
  18. IDARUBICIN HCL [Concomitant]

REACTIONS (6)
  - ABDOMINAL DISTENSION [None]
  - BLOOD CREATININE INCREASED [None]
  - BOWEL SOUNDS ABNORMAL [None]
  - CHRONIC OBSTRUCTIVE PULMONARY DISEASE [None]
  - CONDITION AGGRAVATED [None]
  - GASTROINTESTINAL HYPOMOTILITY [None]
